FAERS Safety Report 8450803 (Version 6)
Quarter: 2013Q3

REPORT INFORMATION
  Report Type: Report from Study
  Country: CZ (occurrence: CZ)
  Receive Date: 20120309
  Receipt Date: 20130715
  Transmission Date: 20140515
  Serious: Yes (Life-Threatening, Hospitalization)
  Sender: FDA-Public Use
  Company Number: CZ-BRISTOL-MYERS SQUIBB COMPANY-16432130

PATIENT
  Age: 71 Year
  Sex: Female

DRUGS (4)
  1. METFORMIN HCL [Suspect]
     Indication: TYPE 2 DIABETES MELLITUS
     Dates: end: 20120117
  2. NOVOMIX [Suspect]
     Indication: TYPE 2 DIABETES MELLITUS
  3. PLACEBO [Suspect]
     Indication: TYPE 2 DIABETES MELLITUS
     Dosage: INTER ON 27DEC11 AND RESTAT ON 27FEB12
     Dates: start: 20100525
  4. ASPIRIN [Concomitant]
     Dosage: 100MG

REACTIONS (1)
  - Hypoglycaemia [Recovered/Resolved]
